FAERS Safety Report 25657367 (Version 1)
Quarter: 2025Q3

REPORT INFORMATION
  Report Type: Spontaneous
  Country: CN (occurrence: CN)
  Receive Date: 20250808
  Receipt Date: 20250808
  Transmission Date: 20251021
  Serious: Yes (Hospitalization, Other)
  Sender: RANBAXY
  Company Number: CN-SUN PHARMACEUTICAL INDUSTRIES INC-2025R1-521386

PATIENT
  Age: 60 Year
  Sex: Female

DRUGS (3)
  1. DOCETAXEL [Suspect]
     Active Substance: DOCETAXEL
     Indication: Thyroid cancer
     Route: 065
     Dates: start: 20220512
  2. DOXORUBICIN [Suspect]
     Active Substance: DOXORUBICIN
     Indication: Thyroid cancer
     Route: 065
     Dates: start: 20220512
  3. CYCLOPHOSPHAMIDE [Suspect]
     Active Substance: CYCLOPHOSPHAMIDE
     Indication: Thyroid cancer
     Route: 065
     Dates: start: 20220512

REACTIONS (1)
  - Dermatomyositis [Recovered/Resolved]
